FAERS Safety Report 5496618-8 (Version None)
Quarter: 2007Q4

REPORT INFORMATION
  Report Type: 
  Country: None (occurrence: None)
  Receive Date: 20071025
  Receipt Date: 20070620
  Transmission Date: 20080405
  Serious: No
  Sender: FDA-Public Use
  Company Number: A0660045A

PATIENT
  Age: 80 Year
  Sex: Female

DRUGS (1)
  1. SERETIDE [Suspect]
     Indication: ASTHMA
     Route: 055

REACTIONS (5)
  - BURNING SENSATION [None]
  - DRY MOUTH [None]
  - GLOSSODYNIA [None]
  - PRODUCTIVE COUGH [None]
  - SKIN INFECTION [None]
